FAERS Safety Report 8979311 (Version 1)
Quarter: 2012Q4

REPORT INFORMATION
  Report Type: Report from Study
  Country: SE (occurrence: SE)
  Receive Date: 20121221
  Receipt Date: 20121221
  Transmission Date: 20130627
  Serious: Yes (Hospitalization, Other)
  Sender: FDA-Public Use
  Company Number: SE-PFIZER INC-SE-WYE-H09852609

PATIENT
  Age: 41 Year
  Sex: Female
  Weight: 69 kg

DRUGS (50)
  1. SIROLIMUS [Suspect]
     Indication: PROPHYLAXIS AGAINST RENAL TRANSPLANT REJECTION
     Dosage: 9.0 mg, 1x/day
     Route: 048
     Dates: start: 20031216, end: 20031221
  2. SIROLIMUS [Suspect]
     Dosage: 3.0 mg, 1x/day
     Route: 048
     Dates: start: 20031222, end: 20031222
  3. SIROLIMUS [Suspect]
     Dosage: 5 mg, 1x/day
     Route: 048
     Dates: start: 20031223, end: 20031229
  4. SIROLIMUS [Suspect]
     Dosage: 3.0 mg, 1x/day
     Route: 048
     Dates: start: 20031230, end: 20040113
  5. METHYLPREDNISOLONE [Suspect]
     Indication: PROPHYLAXIS AGAINST RENAL TRANSPLANT REJECTION
     Dosage: 500.0 mg, 1x/day
     Route: 042
     Dates: start: 20031202
  6. METHYLPREDNISOLONE [Suspect]
     Indication: PROPHYLAXIS AGAINST RENAL TRANSPLANT REJECTION
     Dosage: 250 mg, 1 in 1 total
     Route: 048
     Dates: start: 20031203, end: 20031203
  7. PREDNISOLONE [Suspect]
     Indication: PROPHYLAXIS AGAINST RENAL TRANSPLANT REJECTION
     Dosage: 50 mg, 1x/day
     Route: 048
     Dates: start: 20031204
  8. PREDNISOLONE [Suspect]
     Dosage: 10 mg, 2x/day
     Route: 048
     Dates: start: 20031205
  9. PREDNISOLONE [Suspect]
     Dosage: 7.5 mg, 2x/day
     Route: 048
     Dates: start: 20031216
  10. PREDNISOLONE [Suspect]
     Dosage: 15 mg, 1x/day
     Route: 048
     Dates: start: 20031217
  11. PREDNISOLONE [Suspect]
     Dosage: 6.25 mg, 2x/day
     Route: 048
     Dates: start: 20031229
  12. PREDNISOLONE [Suspect]
     Dosage: 10 mg, 1x/day
     Route: 048
     Dates: start: 20040109
  13. PREDNISOLONE [Suspect]
     Dosage: 7.5 mg, 1x/day
     Route: 048
     Dates: start: 20040326
  14. PREDNISOLONE [Suspect]
     Dosage: 5 mg, 1x/day
     Route: 048
     Dates: start: 20040607
  15. MYCOPHENOLATE MOFETIL [Suspect]
     Indication: PROPHYLAXIS AGAINST RENAL TRANSPLANT REJECTION
     Dosage: 1.0 g, 2x/day
     Route: 048
     Dates: start: 20031202, end: 20031203
  16. MYCOPHENOLATE MOFETIL [Suspect]
     Dosage: 1 g, 1x/day
     Route: 048
     Dates: start: 20031204
  17. MYCOPHENOLATE MOFETIL [Suspect]
     Dosage: 500 mg, 2x/day
     Route: 048
     Dates: start: 20031205
  18. MYCOPHENOLATE MOFETIL [Suspect]
     Dosage: 1 g, 2x/day
     Route: 048
     Dates: start: 20031212
  19. MYCOPHENOLATE MOFETIL [Suspect]
     Dosage: 1 g, 1x/day
     Route: 048
     Dates: start: 20031222
  20. MYCOPHENOLATE MOFETIL [Suspect]
     Dosage: 750 mg, 2x/day
     Route: 048
     Dates: start: 20031223
  21. MYCOPHENOLATE MOFETIL [Suspect]
     Dosage: 500 mg, 2x/day
     Route: 048
     Dates: start: 20031229, end: 20040220
  22. CYCLOSPORINE [Suspect]
     Indication: PROPHYLAXIS AGAINST RENAL TRANSPLANT REJECTION
     Dosage: 100 mg, 1x/day
     Route: 048
     Dates: start: 20031209
  23. CYCLOSPORINE [Suspect]
     Dosage: 87.5 mg, 2x/day
     Route: 048
     Dates: start: 20031210
  24. CYCLOSPORINE [Suspect]
     Dosage: 125 mg, 1x/day
     Dates: start: 20031213, end: 20031214
  25. TACROLIMUS [Suspect]
     Indication: PROPHYLAXIS AGAINST RENAL TRANSPLANT REJECTION
     Dosage: 4.0 mg, 2x/day
     Route: 048
     Dates: start: 20040114
  26. TACROLIMUS [Suspect]
     Dosage: 2.0 mg, 2x/day
     Route: 048
     Dates: start: 20040117
  27. TACROLIMUS [Suspect]
     Indication: PROPHYLAXIS AGAINST RENAL TRANSPLANT REJECTION
     Dosage: 2 mg, 2x/day
     Route: 048
     Dates: start: 20040607
  28. TACROLIMUS [Suspect]
     Dosage: 2.5 mg, 2x/day
     Route: 048
     Dates: start: 20050211
  29. DACLIZUMAB [Suspect]
     Indication: PROPHYLAXIS AGAINST RENAL TRANSPLANT REJECTION
     Dosage: 130 mg, UNK
     Route: 042
     Dates: start: 20031202, end: 20031202
  30. CEFOTAXIME [Concomitant]
     Dosage: 1 g, 1x/day
     Route: 042
     Dates: start: 20031202, end: 20031204
  31. FUROSEMIDE [Concomitant]
     Dosage: 120 mg, UNK
     Route: 048
     Dates: start: 20031202
  32. VALGANCICLOVIR [Concomitant]
     Dosage: 450 mg, 1x/day
     Route: 048
     Dates: start: 20031209
  33. VALGANCICLOVIR [Concomitant]
     Dosage: 225 mg, 1x/day
     Route: 048
     Dates: start: 20031216
  34. METOPROLOL [Concomitant]
     Dosage: 25 mg, 1x/day
     Route: 048
     Dates: start: 20031212
  35. METOPROLOL [Concomitant]
     Dosage: 50 mg, 2x/day
     Route: 048
     Dates: start: 20040607
  36. PANTOPRAZOLE [Concomitant]
     Dosage: 40 mg, 2x/day
     Route: 048
     Dates: start: 20031210
  37. ALFACALCIDOL [Concomitant]
     Dosage: 0.25 ug, 1x/day
     Route: 048
     Dates: start: 20031215
  38. CALCIUM [Concomitant]
     Dosage: 1 g, 2x/day
     Route: 048
     Dates: start: 20031215
  39. EPOETIN ALFA [Concomitant]
     Dosage: 5000 IU, as needed
     Route: 058
     Dates: start: 20031223
  40. INSULIN [Concomitant]
     Dosage: 14 IU, as needed
     Route: 058
     Dates: start: 1973
  41. ANTITHYMOCYTE IMMUNOGLOBULIN [Concomitant]
     Dosage: 350 mg, 1x/day
     Route: 042
     Dates: start: 20031203, end: 20031209
  42. AZATHIOPRINE [Concomitant]
     Dosage: 75 mg, 1x/day
     Route: 048
     Dates: start: 20040301
  43. CIPROFLOXACIN [Concomitant]
     Dosage: 500 mg, 1x/day
     Route: 048
     Dates: start: 20031207, end: 20031222
  44. CIPROFLOXACIN [Concomitant]
     Dosage: 500 mg, 2x/day
     Route: 048
     Dates: start: 20040917
  45. CIPROFLOXACIN [Concomitant]
     Dosage: 500 mg, 1x/day
     Route: 048
     Dates: start: 20040927, end: 20041008
  46. IMUREL [Concomitant]
     Dosage: 75 mg, 1x/day
     Route: 048
     Dates: start: 20040220
  47. ISOSORBIDE MONONITRATE [Concomitant]
     Dosage: 60 mg, 1x/day
     Route: 048
     Dates: start: 20031222
  48. KETOBEMIDONE [Concomitant]
     Dosage: 500 mg, 2x/day
     Route: 042
     Dates: start: 20031205
  49. KETOBEMIDONE [Concomitant]
     Dosage: 5 mg, 4 in 1 as required
     Route: 058
     Dates: start: 20031229, end: 20040102
  50. MEROPENEM [Concomitant]
     Dosage: 500 mg, 1x/day
     Route: 042
     Dates: start: 20031204, end: 20031207

REACTIONS (9)
  - Osteomyelitis [Not Recovered/Not Resolved]
  - Ureteric obstruction [Recovered/Resolved]
  - Abdominal pain [Recovered/Resolved]
  - Myositis [Recovered/Resolved]
  - Lymphocele [Recovered/Resolved]
  - Pain in extremity [Not Recovered/Not Resolved]
  - Pyelonephritis [Recovered/Resolved]
  - Urinary tract infection [Recovered/Resolved]
  - Sepsis [Recovered/Resolved]
